FAERS Safety Report 24344882 (Version 4)
Quarter: 2025Q2

REPORT INFORMATION
  Report Type: Report from Study
  Country: US (occurrence: US)
  Receive Date: 20240920
  Receipt Date: 20250409
  Transmission Date: 20250717
  Serious: Yes (Other)
  Sender: MERCK SHARP AND DOHME
  Company Number: US-009507513-2408USA009956

PATIENT
  Sex: Female
  Weight: 50.34 kg

DRUGS (25)
  1. WINREVAIR [Suspect]
     Active Substance: SOTATERCEPT-CSRK
     Indication: Pulmonary arterial hypertension
     Dosage: DOSE DESCRIPTION : 0.7 MILLILITER, Q3W, STRENGTH: 45 MG?DAILY DOSE : 0.033 MILLILITER?REGIMEN DOS...
     Route: 058
     Dates: start: 20240822, end: 20240822
  2. WINREVAIR [Suspect]
     Active Substance: SOTATERCEPT-CSRK
     Dosage: DOSE DESCRIPTION : 0.3 MILLILITER, Q3W, STRENGTH: 45 MG?DAILY DOSE : 0.014 MILLILITER?REGIMEN DOS...
     Route: 058
  3. WINREVAIR [Suspect]
     Active Substance: SOTATERCEPT-CSRK
  4. WINREVAIR [Suspect]
     Active Substance: SOTATERCEPT-CSRK
  5. WINREVAIR [Suspect]
     Active Substance: SOTATERCEPT-CSRK
  6. WINREVAIR [Suspect]
     Active Substance: SOTATERCEPT-CSRK
  7. WINREVAIR [Suspect]
     Active Substance: SOTATERCEPT-CSRK
  8. WINREVAIR [Suspect]
     Active Substance: SOTATERCEPT-CSRK
  9. UPTRAVI [Concomitant]
     Active Substance: SELEXIPAG
  10. FUROSEMIDE [Concomitant]
     Active Substance: FUROSEMIDE
  11. FISH OIL [Concomitant]
     Active Substance: FISH OIL
  12. CLIMARA [Concomitant]
     Active Substance: ESTRADIOL
  13. FLECAINIDE [Concomitant]
     Active Substance: FLECAINIDE
  14. COENZYM Q10 [Concomitant]
  15. VITAMINS [Concomitant]
     Active Substance: VITAMINS
  16. VITAMIN D3 [Concomitant]
     Active Substance: CHOLECALCIFEROL
  17. ADEMPAS [Concomitant]
     Active Substance: RIOCIGUAT
  18. JAKAFI [Concomitant]
     Active Substance: RUXOLITINIB
  19. SPIRONOLACTONE [Concomitant]
     Active Substance: SPIRONOLACTONE
  20. SYNTHROID [Concomitant]
     Active Substance: LEVOTHYROXINE SODIUM
  21. ASPIRIN [Concomitant]
     Active Substance: ASPIRIN
  22. ALEVE [Concomitant]
     Active Substance: NAPROXEN SODIUM
  23. SELENIUM [Concomitant]
     Active Substance: SELENIUM
  24. FINASTERIDE [Concomitant]
     Active Substance: FINASTERIDE
  25. ROSUVASTATIN CALCIUM [Concomitant]
     Active Substance: ROSUVASTATIN CALCIUM

REACTIONS (14)
  - Neuropathy peripheral [Unknown]
  - Fatigue [Unknown]
  - Chills [Unknown]
  - Dyspnoea exertional [Unknown]
  - Injection site bruising [Unknown]
  - Sinus congestion [Not Recovered/Not Resolved]
  - Epistaxis [Recovered/Resolved]
  - Headache [Not Recovered/Not Resolved]
  - Arthralgia [Not Recovered/Not Resolved]
  - Sinusitis [Unknown]
  - Brain fog [Unknown]
  - Laboratory test abnormal [Unknown]
  - Cough [Recovering/Resolving]
  - Dizziness [Recovering/Resolving]

NARRATIVE: CASE EVENT DATE: 20240101
